FAERS Safety Report 18911517 (Version 1)
Quarter: 2021Q1

REPORT INFORMATION
  Report Type: Spontaneous
  Country: DE (occurrence: DE)
  Receive Date: 20210218
  Receipt Date: 20210218
  Transmission Date: 20210420
  Serious: Yes (Other)
  Sender: FDA-Public Use
  Company Number: DE-TEVA-2021-DE-1880483

PATIENT
  Age: 1 Day
  Sex: Female
  Weight: 3.51 kg

DRUGS (9)
  1. FRISIUM [Suspect]
     Active Substance: CLOBAZAM
     Indication: EPILEPSY
     Dosage: 20 [MG / D (TO 5)] / FIRST 5 MG /, THEN 10 MG / D. FROM GW 35: 20 MG / D
     Route: 064
     Dates: start: 20190801, end: 20190826
  2. L?THYROXIN [Concomitant]
     Active Substance: LEVOTHYROXINE SODIUM
     Indication: HYPOTHYROIDISM
     Dosage: 50 MICROGRAM DAILY;
     Route: 064
     Dates: start: 20181209, end: 20190826
  3. PREDNISOLON [Concomitant]
     Active Substance: PREDNISOLONE
     Indication: RHEUMATOID ARTHRITIS
     Dosage: 10 [MG / D (UP TO 5 MG / D)]
     Route: 064
     Dates: start: 20181209, end: 20190826
  4. PANTOPRAZOL [Concomitant]
     Active Substance: PANTOPRAZOLE SODIUM
     Indication: GASTRITIS PROPHYLAXIS
     Dosage: 40 [MG / D (IF NECESSARY)]
     Route: 064
  5. PARACETAMOL [Concomitant]
     Active Substance: ACETAMINOPHEN
     Indication: RHEUMATOID ARTHRITIS
     Dosage: 500 [MG / D (IF NECESSARY)] / IN TOTAL, NO MORE HAN 25 TABLETS DURING THE WHOLE PREGNANCY , UNIT DOS
     Route: 064
  6. IBUPROFEN. [Concomitant]
     Active Substance: IBUPROFEN
     Indication: RHEUMATOID ARTHRITIS
     Dosage: IN TOTAL, 10 TABLES DURING PREGNANCY
     Route: 064
  7. AGYRAX [Concomitant]
     Active Substance: MECLIZINE HYDROCHLORIDE
     Indication: MORNING SICKNESS
     Dosage: 100 MILLIGRAM DAILY;
     Route: 064
  8. LAMOTRIGIN [Suspect]
     Active Substance: LAMOTRIGINE
     Indication: EPILEPSY
     Dosage: 2000 [MG / D (UP TO 450)]
     Route: 064
     Dates: start: 20181209, end: 20190826
  9. CIMZIA [Concomitant]
     Active Substance: CERTOLIZUMAB PEGOL
     Indication: RHEUMATOID ARTHRITIS
     Dosage: 200 [MG/2WK ]
     Route: 064
     Dates: start: 20181209, end: 20190826

REACTIONS (3)
  - Myoclonus [Unknown]
  - Floppy infant [Recovered/Resolved]
  - Foetal exposure during pregnancy [Unknown]

NARRATIVE: CASE EVENT DATE: 20190826
